FAERS Safety Report 7773916-6 (Version None)
Quarter: 2011Q3

REPORT INFORMATION
  Report Type: 
  Country: None (occurrence: None)
  Receive Date: 20110921
  Receipt Date: 20110527
  Transmission Date: 20111222
  Serious: Yes (Hospitalization)
  Sender: FDA-Public Use
  Company Number: UTC-007491

PATIENT
  Age: 34 Year
  Sex: Female
  Weight: 63.1 kg

DRUGS (5)
  1. TRACLEER [Concomitant]
  2. TYVASO [Suspect]
     Indication: PULMONARY HYPERTENSION
     Dosage: 216 MCG (54 MCG,4 IN 1 D),INHALATION
     Route: 055
     Dates: start: 20100505
  3. TYVASO [Suspect]
     Indication: PORTAL HYPERTENSION
     Dosage: 216 MCG (54 MCG,4 IN 1 D),INHALATION
     Route: 055
     Dates: start: 20100505
  4. REVATIO [Concomitant]
  5. DIURETICS (DIURETICS) [Concomitant]

REACTIONS (1)
  - POST PROCEDURAL INFECTION [None]
